FAERS Safety Report 10874239 (Version 1)
Quarter: 2015Q1

REPORT INFORMATION
  Report Type: Spontaneous
  Country: MX (occurrence: MX)
  Receive Date: 20150227
  Receipt Date: 20150227
  Transmission Date: 20150721
  Serious: Yes (Other)
  Sender: FDA-Public Use
  Company Number: MX-MUNDIPHARMA DS AND PHARMACOVIGILANCE-GBR-2015-0025904

PATIENT
  Age: 75 Year
  Sex: Female

DRUGS (9)
  1. SOLORO7 [Suspect]
     Active Substance: BUPRENORPHINE
     Indication: POST HERPETIC NEURALGIA
     Dosage: 10 MG, UNK
     Route: 062
     Dates: start: 201501, end: 20150113
  2. LYRICA [Concomitant]
     Active Substance: PREGABALIN
     Indication: POST HERPETIC NEURALGIA
     Route: 065
  3. RIVOTRIL [Concomitant]
     Active Substance: CLONAZEPAM
     Indication: POOR QUALITY SLEEP
     Route: 065
  4. HALDOL [Concomitant]
     Active Substance: HALOPERIDOL
     Indication: PRODUCT USED FOR UNKNOWN INDICATION
     Route: 065
  5. PLAVIX [Concomitant]
     Active Substance: CLOPIDOGREL BISULFATE
     Indication: THROMBOCYTOSIS
     Route: 065
  6. HYDREA [Concomitant]
     Active Substance: HYDROXYUREA
     Indication: THROMBOCYTOSIS
     Route: 065
  7. TENORMIN [Concomitant]
     Active Substance: ATENOLOL
     Indication: HYPERTENSION
     Route: 065
  8. ANAPSIQUE [Concomitant]
     Indication: DEPRESSION
     Route: 065
  9. TRILEPTAL [Concomitant]
     Active Substance: OXCARBAZEPINE
     Indication: PRODUCT USED FOR UNKNOWN INDICATION
     Route: 065

REACTIONS (7)
  - Aggression [None]
  - Fluid intake reduced [None]
  - Delirium [Not Recovered/Not Resolved]
  - Agitation [None]
  - Insomnia [None]
  - Memory impairment [Unknown]
  - Feeding disorder [None]

NARRATIVE: CASE EVENT DATE: 20150112
